FAERS Safety Report 8469174 (Version 3)
Quarter: 2012Q4

REPORT INFORMATION
  Report Type: 
  Country: BR (occurrence: BR)
  Receive Date: 20120321
  Receipt Date: 20121008
  Transmission Date: 20130627
  Serious: Yes (Death, Hospitalization, Other)
  Sender: FDA-Public Use
  Company Number: BR-ELI_LILLY_AND_COMPANY-BR201203002919

PATIENT
  Sex: Female
  Weight: 41 kg

DRUGS (1)
  1. FORTEO [Suspect]
     Indication: OSTEOPOROSIS
     Dosage: UNK, unknown
     Route: 058
     Dates: start: 201112

REACTIONS (5)
  - Organ failure [Fatal]
  - Pneumonia [Fatal]
  - Lung disorder [Not Recovered/Not Resolved]
  - Pulmonary oedema [Unknown]
  - Platelet count increased [Unknown]
